FAERS Safety Report 13598699 (Version 2)
Quarter: 2017Q2

REPORT INFORMATION
  Report Type: Spontaneous
  Country: BG (occurrence: BG)
  Receive Date: 20170531
  Receipt Date: 20170608
  Transmission Date: 20170830
  Serious: Yes (Other)
  Sender: FDA-Public Use
  Company Number: BG-PFIZER INC-2017233333

PATIENT
  Age: 55 Year
  Sex: Female

DRUGS (5)
  1. MEDROL [Suspect]
     Active Substance: METHYLPREDNISOLONE
     Indication: ASTHMA
     Dosage: 8 MG, DAILY
     Dates: start: 201703, end: 20170323
  2. TAVANIC [Concomitant]
     Active Substance: LEVOFLOXACIN
     Indication: FUNGAL INFECTION
     Dosage: UNK
  3. FUNGOLON [Concomitant]
     Indication: FUNGAL INFECTION
     Dosage: UNK
  4. ASPIRIN /00002701/ [Concomitant]
     Active Substance: ASPIRIN
     Dosage: UNK
  5. SERETIDE [Concomitant]
     Active Substance: FLUTICASONE PROPIONATE\SALMETEROL XINAFOATE
     Dosage: UNK

REACTIONS (8)
  - Swelling face [Not Recovered/Not Resolved]
  - Skin disorder [Not Recovered/Not Resolved]
  - Erythema [Not Recovered/Not Resolved]
  - Cushing^s syndrome [Not Recovered/Not Resolved]
  - Abdominal discomfort [Not Recovered/Not Resolved]
  - Muscle spasms [Not Recovered/Not Resolved]
  - Herpes simplex [Not Recovered/Not Resolved]
  - Hirsutism [Not Recovered/Not Resolved]

NARRATIVE: CASE EVENT DATE: 201703
